FAERS Safety Report 17056205 (Version 3)
Quarter: 2019Q4

REPORT INFORMATION
  Report Type: Spontaneous
  Country: DE (occurrence: DE)
  Receive Date: 20191121
  Receipt Date: 20191216
  Transmission Date: 20200122
  Serious: Yes (Other)
  Sender: FDA-Public Use
  Company Number: DE-BRISTOL-MYERS SQUIBB COMPANY-BMS-2019-110861

PATIENT
  Age: 66 Year
  Sex: Female

DRUGS (3)
  1. DACARBAZINE. [Suspect]
     Active Substance: DACARBAZINE
     Indication: ACRAL LENTIGINOUS MELANOMA
     Route: 065
  2. CARMUSTINE. [Suspect]
     Active Substance: CARMUSTINE
     Indication: ACRAL LENTIGINOUS MELANOMA
     Route: 065
  3. HYDROXYUREA. [Suspect]
     Active Substance: HYDROXYUREA
     Indication: ACRAL LENTIGINOUS MELANOMA
     Route: 065

REACTIONS (2)
  - Intentional product use issue [Unknown]
  - Pancytopenia [Unknown]
